FAERS Safety Report 5720266-5 (Version None)
Quarter: 2008Q2

REPORT INFORMATION
  Report Type: 
  Country: None (occurrence: None)
  Receive Date: 20080428
  Receipt Date: 20080417
  Transmission Date: 20081010
  Serious: Yes (Death, Hospitalization)
  Sender: FDA-Public Use
  Company Number: DE-ROCHE-543092

PATIENT
  Sex: Female
  Weight: 53 kg

DRUGS (9)
  1. CAPECITABINE [Suspect]
     Indication: BREAST CANCER
     Dosage: DOSAGE REPORTED AS DAY 1-14, DAY 21.
     Route: 048
     Dates: start: 20071011, end: 20071030
  2. BISOPROLOL FUMARATE [Concomitant]
     Dosage: FREQUENCY: 1/2.
     Dates: start: 20071104
  3. NEXIUM [Concomitant]
     Indication: PROPHYLAXIS
  4. ARCOXIA [Concomitant]
     Indication: PAIN
     Dates: start: 20070829
  5. OXYGESIC [Concomitant]
     Indication: PAIN
     Dates: start: 20070829
  6. DIMENHYDRINATE [Concomitant]
     Indication: NAUSEA
     Dosage: DRUG: VOMEX SUPP.
  7. PARACETAMOL [Concomitant]
     Indication: PAIN
     Dates: start: 20071105
  8. NOVALGIN [Concomitant]
     Indication: PAIN
     Dates: start: 20071105
  9. 1 CONCOMITANT DRUG [Concomitant]
     Indication: PAIN
     Dosage: DRUG: SEVREDOL
     Dates: start: 20070829

REACTIONS (3)
  - DEATH [None]
  - NEOPLASM PROGRESSION [None]
  - PLEURAL EFFUSION [None]
